FAERS Safety Report 9012507 (Version 1)
Quarter: 2013Q1

REPORT INFORMATION
  Report Type: Spontaneous
  Country: US (occurrence: US)
  Receive Date: 20130114
  Receipt Date: 20130114
  Transmission Date: 20140127
  Serious: No
  Sender: FDA-Public Use
  Company Number: US-PFIZER INC-2013014670

PATIENT
  Age: 51 Year
  Sex: Female
  Weight: 69.39 kg

DRUGS (9)
  1. NEURONTIN [Suspect]
     Indication: NEURALGIA
     Dosage: 100 MG, 3X/DAY
  2. NEURONTIN [Suspect]
     Dosage: 200 MG, 3X/DAY
  3. SECTRAL [Concomitant]
     Indication: ATRIAL FIBRILLATION
     Dosage: 200 MG, 2X/DAY
  4. ACETYLSALICYLIC ACID [Concomitant]
     Dosage: 81 MG, DAILY
  5. VITAMIN D [Concomitant]
     Dosage: 2000 IU, DAILY
  6. ZYRTEC [Concomitant]
     Indication: HYPERSENSITIVITY
     Dosage: UNK, DAILY
  7. VICODIN [Concomitant]
     Dosage: ONE TABLET UP TO THREE TIMES A DAY, AS NEEDED
  8. MORPHINE [Concomitant]
     Dosage: 50 MG, DAILY
  9. FLECAINIDE ACETATE [Concomitant]
     Indication: CARDIAC DISORDER
     Dosage: 100 MG, 2X/DAY

REACTIONS (2)
  - Feeling abnormal [Recovered/Resolved]
  - Speech disorder [Recovered/Resolved]
